FAERS Safety Report 16652696 (Version 2)
Quarter: 2019Q3

REPORT INFORMATION
  Report Type: Report from Study
  Country: CA (occurrence: CA)
  Receive Date: 20190731
  Receipt Date: 20190823
  Transmission Date: 20191004
  Serious: Yes (Death, Hospitalization)
  Sender: FDA-Public Use
  Company Number: CA-JNJFOC-20190737708

PATIENT
  Age: 87 Year
  Sex: Female

DRUGS (1)
  1. REMICADE [Suspect]
     Active Substance: INFLIXIMAB
     Indication: RHEUMATOID ARTHRITIS
     Route: 042

REACTIONS (3)
  - Death [Fatal]
  - B-cell lymphoma [Not Recovered/Not Resolved]
  - Intervertebral disc disorder [Unknown]

NARRATIVE: CASE EVENT DATE: 20190811
